FAERS Safety Report 6235406-1 (Version None)
Quarter: 2009Q2

REPORT INFORMATION
  Report Type: 
  Country: None (occurrence: None)
  Receive Date: 20090618
  Receipt Date: 20090306
  Transmission Date: 20091009
  Serious: No
  Sender: FDA-Public Use
  Company Number: US-ASTRAZENECA-2009UW06022

PATIENT
  Age: 82 Year
  Sex: Male
  Weight: 77.1 kg

DRUGS (3)
  1. ENTOCORT EC [Suspect]
     Route: 048
     Dates: start: 20090220
  2. HYTRIN [Concomitant]
  3. METFORMIN HCL [Concomitant]

REACTIONS (2)
  - HAEMOGLOBIN DECREASED [None]
  - WEIGHT DECREASED [None]
